FAERS Safety Report 4961547-2 (Version None)
Quarter: 2006Q1

REPORT INFORMATION
  Report Type: 
  Country: None (occurrence: None)
  Receive Date: 20060201
  Receipt Date: 20051026
  Transmission Date: 20060701
  Serious: No
  Sender: FDA-Public Use
  Company Number: 2005PV003847

PATIENT
  Age: 66 Year
  Sex: Male
  Weight: 88.4514 kg

DRUGS (15)
  1. BYETTA [Suspect]
     Indication: DIABETES MELLITUS NON-INSULIN-DEPENDENT
     Dosage: 5 MCG;BID;SC
     Route: 058
     Dates: start: 20050801, end: 20050901
  2. GLYBURIDE [Concomitant]
  3. LANTUS [Concomitant]
  4. ZETIA [Concomitant]
  5. COZAAR [Concomitant]
  6. TRICOR [Concomitant]
  7. PRILOSEC [Concomitant]
  8. CAPTOPRIL [Concomitant]
  9. LASIX [Concomitant]
  10. COREG [Concomitant]
  11. SOMA [Concomitant]
  12. POTASSIUM CHLORIDE [Concomitant]
  13. ASPIRIN [Concomitant]
  14. PROZAC [Concomitant]
  15. IBUPROFEN [Concomitant]

REACTIONS (4)
  - ABDOMINAL DISTENSION [None]
  - NAUSEA [None]
  - STOMACH DISCOMFORT [None]
  - VOMITING [None]
